FAERS Safety Report 4872957-6 (Version None)
Quarter: 2006Q1

REPORT INFORMATION
  Report Type: 
  Country: None (occurrence: None)
  Receive Date: 20060105
  Receipt Date: 20050411
  Transmission Date: 20060701
  Serious: No
  Sender: FDA-Public Use
  Company Number: US-BRISTOL-MYERS SQUIBB COMPANY-12930236

PATIENT
  Age: 27 Year
  Sex: Male

DRUGS (1)
  1. SERZONE [Suspect]
     Route: 048
     Dates: start: 19961001, end: 19990726

REACTIONS (7)
  - CONSTIPATION [None]
  - DRY MOUTH [None]
  - ERECTION INCREASED [None]
  - SWOLLEN TONGUE [None]
  - TRISMUS [None]
  - VISUAL DISTURBANCE [None]
  - WEIGHT INCREASED [None]
